FAERS Safety Report 4708493-7 (Version None)
Quarter: 2005Q3

REPORT INFORMATION
  Report Type: 
  Country: None (occurrence: None)
  Receive Date: 20050705
  Receipt Date: 20050705
  Transmission Date: 20060218
  Serious: Yes (Other)
  Sender: FDA-Public Use
  Company Number: None

PATIENT
  Sex: Female
  Weight: 90.7194 kg

DRUGS (3)
  1. DURAGESIC PATCH (GENERIC) [Suspect]
     Indication: BACK PAIN
     Dosage: 25 MCG/HR Q 72 HOUR
     Dates: start: 20050527
  2. DURAGESIC PATCH (GENERIC) [Suspect]
     Indication: FIBROMYALGIA
     Dosage: 25 MCG/HR Q 72 HOUR
     Dates: start: 20050527
  3. SYNTHROID [Concomitant]

REACTIONS (4)
  - DIZZINESS [None]
  - NAUSEA [None]
  - PHARMACEUTICAL PRODUCT COMPLAINT [None]
  - VOMITING [None]
